FAERS Safety Report 19196976 (Version 3)
Quarter: 2021Q4

REPORT INFORMATION
  Report Type: Spontaneous
  Country: JP (occurrence: JP)
  Receive Date: 20210430
  Receipt Date: 20211202
  Transmission Date: 20220303
  Serious: Yes (Other)
  Sender: FDA-Public Use
  Company Number: JP-ASTELLAS-2021JP005923

PATIENT
  Age: 28 Year
  Sex: Female

DRUGS (1)
  1. PROGRAF [Suspect]
     Active Substance: TACROLIMUS
     Indication: Liver transplant rejection
     Dosage: 1 MG/DAY, UNKNOWN FREQ.
     Route: 048
     Dates: start: 20170814

REACTIONS (5)
  - Transplant rejection [Unknown]
  - Gestational diabetes [Unknown]
  - Pneumonia [Unknown]
  - Gestational hypertension [Unknown]
  - Maternal exposure during pregnancy [Unknown]
